FAERS Safety Report 25237071 (Version 1)
Quarter: 2025Q2

REPORT INFORMATION
  Report Type: Spontaneous
  Country: AU (occurrence: AU)
  Receive Date: 20250425
  Receipt Date: 20250425
  Transmission Date: 20250717
  Serious: Yes (Other)
  Sender: Alvotech
  Company Number: AU-CIPLA LTD.-2024AU05266

PATIENT
  Age: 65 Year
  Sex: Female

DRUGS (2)
  1. ADALIMUMAB [Suspect]
     Active Substance: ADALIMUMAB
     Indication: Seronegative arthritis
     Route: 065
  2. CERTOLIZUMAB PEGOL [Suspect]
     Active Substance: CERTOLIZUMAB PEGOL
     Indication: Seronegative arthritis
     Route: 065

REACTIONS (3)
  - Brain stem syndrome [Not Recovered/Not Resolved]
  - Demyelination [Not Recovered/Not Resolved]
  - Off label use [Unknown]
